FAERS Safety Report 4726013-8 (Version None)
Quarter: 2005Q3

REPORT INFORMATION
  Report Type: 
  Country: None (occurrence: None)
  Receive Date: 20050727
  Receipt Date: 20050509
  Transmission Date: 20060218
  Serious: Yes (Life-Threatening, Disabling, Other)
  Sender: FDA-Public Use
  Company Number: JP-MERCK-0505USA03378

PATIENT
  Age: 76 Year
  Sex: Male

DRUGS (5)
  1. PEPCID RPD [Suspect]
     Indication: GASTROINTESTINAL DISORDER
     Route: 048
     Dates: start: 20050429, end: 20050507
  2. CARVEDILOL [Concomitant]
     Indication: CARDIAC FAILURE CONGESTIVE
     Route: 048
  3. ROCALTROL [Concomitant]
     Indication: RENAL FAILURE CHRONIC
     Route: 048
  4. CALTAN [Concomitant]
     Indication: RENAL FAILURE CHRONIC
     Route: 048
  5. BISOLVON [Concomitant]
     Route: 048

REACTIONS (5)
  - BLOOD CREATINE PHOSPHOKINASE INCREASED [None]
  - CARDIAC FAILURE [None]
  - CONFUSIONAL STATE [None]
  - DELIRIUM [None]
  - HAEMODIALYSIS [None]
